FAERS Safety Report 8334096-1 (Version None)
Quarter: 2012Q2

REPORT INFORMATION
  Report Type: 
  Country: None (occurrence: None)
  Receive Date: 20120503
  Receipt Date: 20120418
  Transmission Date: 20120825
  Serious: Yes (Hospitalization, Other)
  Sender: FDA-Public Use
  Company Number: DE-ROCHE-1050068

PATIENT
  Age: 48 Year
  Sex: Female
  Weight: 56 kg

DRUGS (5)
  1. VEMURAFENIB [Suspect]
     Route: 048
     Dates: start: 20120416
  2. FERROUS SULFATE TAB [Concomitant]
     Dates: start: 20120319
  3. VEMURAFENIB [Suspect]
     Indication: METASTATIC MALIGNANT MELANOMA
     Route: 048
     Dates: start: 20120118, end: 20120317
  4. KLACID (GERMANY) [Concomitant]
     Dates: start: 20120321, end: 20120411
  5. VEMURAFENIB [Suspect]
     Dosage: THERAPY RESTARTED
     Route: 048
     Dates: start: 20120331, end: 20120410

REACTIONS (4)
  - PNEUMONIA PRIMARY ATYPICAL [None]
  - PNEUMONIA [None]
  - KERATOACANTHOMA [None]
  - SQUAMOUS CELL CARCINOMA OF SKIN [None]
